FAERS Safety Report 16032851 (Version 2)
Quarter: 2021Q1

REPORT INFORMATION
  Report Type: Other
  Country: PT (occurrence: PT)
  Receive Date: 20190305
  Receipt Date: 20210309
  Transmission Date: 20210419
  Serious: Yes (Other)
  Sender: FDA-Public Use
  Company Number: PT-ROCHE-2270190

PATIENT
  Age: 64 Year
  Sex: Female
  Weight: 87 kg

DRUGS (26)
  1. TRASTUZUMAB. [Suspect]
     Active Substance: TRASTUZUMAB
     Indication: HER2 POSITIVE BREAST CANCER
     Dosage: MOST RECENT DOSE PRIOR TO THE EVENT: 24/OCT/2017
     Route: 042
     Dates: start: 20171024, end: 20180823
  2. LISINOPRIL. [Concomitant]
     Active Substance: LISINOPRIL
  3. ZOLPIDEM [Concomitant]
     Active Substance: ZOLPIDEM TARTRATE
  4. MORFINE [Concomitant]
     Active Substance: MORPHINE
  5. DOCETAXEL. [Suspect]
     Active Substance: DOCETAXEL
     Indication: HER2 POSITIVE BREAST CANCER
     Route: 042
     Dates: start: 20171024, end: 20180130
  6. BUDESONIDE. [Concomitant]
     Active Substance: BUDESONIDE
  7. THIOCOLCHICOSIDE [Concomitant]
     Active Substance: THIOCOLCHICOSIDE
     Dates: start: 20180108
  8. MONTELUKAST [Concomitant]
     Active Substance: MONTELUKAST SODIUM
  9. DENOSUMAB [Suspect]
     Active Substance: DENOSUMAB
     Indication: HER2 POSITIVE BREAST CANCER
     Route: 058
     Dates: start: 20180509
  10. ESCITALOPRAM [Concomitant]
     Active Substance: ESCITALOPRAM OXALATE
  11. ENOXAPARIN [Concomitant]
     Active Substance: ENOXAPARIN
     Dosage: ONGOING = CHECKED
  12. FORMOTEROL [Concomitant]
     Active Substance: FORMOTEROL
  13. DIAZEPAM. [Concomitant]
     Active Substance: DIAZEPAM
  14. PARACETAMOL [Concomitant]
     Active Substance: ACETAMINOPHEN
     Dates: start: 20180108
  15. OMEPRAZOL [Concomitant]
     Active Substance: OMEPRAZOLE
  16. NEUTRAL INSULIN [Concomitant]
     Active Substance: INSULIN PORK\INSULIN PURIFIED PORK
  17. CEFUROXIME. [Concomitant]
     Active Substance: CEFUROXIME
     Indication: PYELONEPHRITIS
     Dates: start: 20180718
  18. PERTUZUMAB. [Suspect]
     Active Substance: PERTUZUMAB
     Indication: HER2 POSITIVE BREAST CANCER
     Dosage: MOST RECENT DOSE ON 24/OCT/2017, 27/MAR/2018
     Route: 042
     Dates: start: 20171024, end: 20180130
  19. ROSUVASTATIN. [Concomitant]
     Active Substance: ROSUVASTATIN
  20. PARACETAMOL [Concomitant]
     Active Substance: ACETAMINOPHEN
     Dosage: ONGOING = CHECKED
  21. BUPRENORFIN [Concomitant]
     Dates: end: 20180108
  22. LETROZOLE. [Suspect]
     Active Substance: LETROZOLE
     Indication: HER2 POSITIVE BREAST CANCER
     Route: 048
     Dates: start: 20180417, end: 20180906
  23. BILASTINE [Concomitant]
     Active Substance: BILASTINE
  24. METFORMIN [Concomitant]
     Active Substance: METFORMIN HYDROCHLORIDE
  25. THIOCOLCHICOSIDE [Concomitant]
     Active Substance: THIOCOLCHICOSIDE
     Dosage: ONGOING = CHECKED
     Dates: start: 20180706
  26. NAPROXENO [Concomitant]
     Active Substance: NAPROXEN
     Dates: start: 20180706

REACTIONS (2)
  - Diarrhoea [Recovered/Resolved]
  - Cholestasis [Recovered/Resolved]

NARRATIVE: CASE EVENT DATE: 20180130
